FAERS Safety Report 4781277-X (Version None)
Quarter: 2005Q3

REPORT INFORMATION
  Report Type: 
  Country: None (occurrence: None)
  Receive Date: 20050928
  Receipt Date: 20050913
  Transmission Date: 20060218
  Serious: Yes (Other)
  Sender: FDA-Public Use
  Company Number: DE-GLAXOSMITHKLINE-D0047484A

PATIENT
  Age: 70 Year
  Sex: Female
  Weight: 84 kg

DRUGS (9)
  1. AVANDIA [Suspect]
     Dosage: 4MG PER DAY
     Route: 048
     Dates: start: 20050906, end: 20050907
  2. NOVONORM [Concomitant]
     Dosage: 2MG UNKNOWN
     Route: 048
     Dates: start: 20050901
  3. SIOFOR [Concomitant]
     Dosage: 850MG THREE TIMES PER DAY
     Route: 048
  4. ACCUZIDE [Concomitant]
     Dosage: 1TAB PER DAY
     Route: 048
  5. CARMEN [Concomitant]
     Dosage: 10MG PER DAY
     Route: 048
  6. SIMVASTATIN [Concomitant]
     Dosage: 20MG PER DAY
     Route: 048
  7. BISOPROLOL [Concomitant]
     Dosage: 5MG PER DAY
     Route: 048
  8. STARLIX [Concomitant]
     Dosage: 120MG THREE TIMES PER DAY
     Route: 048
  9. PROPAFENON [Concomitant]
     Route: 048

REACTIONS (2)
  - SUPRAVENTRICULAR EXTRASYSTOLES [None]
  - VENTRICULAR TACHYCARDIA [None]
